FAERS Safety Report 11152064 (Version 2)
Quarter: 2015Q2

REPORT INFORMATION
  Report Type: Spontaneous
  Country: US (occurrence: US)
  Receive Date: 20150601
  Receipt Date: 20150604
  Transmission Date: 20150821
  Serious: Yes (Hospitalization, Other)
  Sender: FDA-Public Use
  Company Number: US-PFIZER INC-2015181590

PATIENT
  Age: 70 Year
  Sex: Male
  Weight: 82 kg

DRUGS (12)
  1. IMBRUVICA [Suspect]
     Active Substance: IBRUTINIB
     Indication: CHRONIC LYMPHOCYTIC LEUKAEMIA
     Dosage: 420 MG, 1X/DAY
     Route: 048
     Dates: start: 20140409
  2. TUMS [Concomitant]
     Active Substance: CALCIUM CARBONATE
     Dosage: UNK
  3. ST JOHN^S WORT [Concomitant]
     Active Substance: ST. JOHN^S WORT
     Dosage: UNK
  4. ANTIVERT [Concomitant]
     Active Substance: MECLIZINE HYDROCHLORIDE
     Dosage: UNK
  5. PROMETHAZINE [Concomitant]
     Active Substance: PROMETHAZINE\PROMETHAZINE HYDROCHLORIDE
     Dosage: UNK
  6. LASIX [Concomitant]
     Active Substance: FUROSEMIDE
     Dosage: UNK
  7. XANAX [Suspect]
     Active Substance: ALPRAZOLAM
     Dosage: 0.25 MG, UNK
  8. BENGAY ARTHRITIS PAIN RELIEVING [Concomitant]
     Active Substance: MENTHOL\METHYL SALICYLATE
     Dosage: UNK
  9. ENDOCET [Concomitant]
     Active Substance: ACETAMINOPHEN\OXYCODONE HYDROCHLORIDE
     Dosage: UNK
  10. PEPCID [Concomitant]
     Active Substance: FAMOTIDINE
     Dosage: UNK
  11. BUSPAR [Concomitant]
     Active Substance: BUSPIRONE HYDROCHLORIDE
     Dosage: UNK
  12. ULTRAM [Concomitant]
     Active Substance: TRAMADOL HYDROCHLORIDE
     Dosage: UNK

REACTIONS (7)
  - Burning sensation [Not Recovered/Not Resolved]
  - Decreased appetite [Unknown]
  - Diarrhoea [Unknown]
  - Anxiety [Not Recovered/Not Resolved]
  - Depression [Unknown]
  - Tinnitus [Not Recovered/Not Resolved]
  - Drug dependence [Not Recovered/Not Resolved]
